FAERS Safety Report 4640211-3 (Version None)
Quarter: 2005Q2

REPORT INFORMATION
  Report Type: 
  Country: None (occurrence: None)
  Receive Date: 20050419
  Receipt Date: 20050405
  Transmission Date: 20051028
  Serious: Yes (Death, Hospitalization)
  Sender: FDA-Public Use
  Company Number: FABR-11073

PATIENT
  Age: 57 Year
  Sex: Male
  Weight: 61.3 kg

DRUGS (7)
  1. FABRAZYME [Suspect]
     Indication: FABRY'S DISEASE
     Dosage: 70 MG Q2WKS IV
     Route: 042
     Dates: start: 20040322, end: 20050321
  2. COUMADIN [Concomitant]
  3. DILANTIN [Concomitant]
  4. RENAPLEX [Concomitant]
  5. ALLOPURINOL [Concomitant]
  6. PAXIL [Concomitant]
  7. VITAMIN D [Concomitant]

REACTIONS (1)
  - CARDIAC FAILURE CONGESTIVE [None]
